FAERS Safety Report 12737376 (Version 1)
Quarter: 2016Q3

REPORT INFORMATION
  Report Type: Spontaneous
  Country: US (occurrence: US)
  Receive Date: 20160912
  Receipt Date: 20160912
  Transmission Date: 20161109
  Serious: Yes (Disabling, Other)
  Sender: FDA-Public Use
  Company Number: None

PATIENT
  Age: 45 Year
  Sex: Female
  Weight: 60.75 kg

DRUGS (10)
  1. RIZATRIPTAN. [Concomitant]
     Active Substance: RIZATRIPTAN
  2. CAR- AFATE [Concomitant]
  3. LABETALOL [Concomitant]
     Active Substance: LABETALOL\LABETALOL HYDROCHLORIDE
  4. CELEBREX [Concomitant]
     Active Substance: CELECOXIB
  5. NORVASC [Concomitant]
     Active Substance: AMLODIPINE BESYLATE
  6. LUPRON DEPOT [Suspect]
     Active Substance: LEUPROLIDE ACETATE
     Indication: ADENOMYOSIS
  7. GABAPENTIN. [Concomitant]
     Active Substance: GABAPENTIN
  8. LUPRON DEPOT [Suspect]
     Active Substance: LEUPROLIDE ACETATE
     Indication: UTERINE LEIOMYOMA
  9. ATENOLOL. [Concomitant]
     Active Substance: ATENOLOL
  10. CORTISONE [Concomitant]
     Active Substance: CORTISONE\HYDROCORTISONE

REACTIONS (8)
  - Migraine [None]
  - Syncope [None]
  - Eczema [None]
  - Arthritis [None]
  - Fall [None]
  - Fibromyalgia [None]
  - Impaired work ability [None]
  - Hypertension [None]

NARRATIVE: CASE EVENT DATE: 20141201
